FAERS Safety Report 7239135-7 (Version None)
Quarter: 2011Q1

REPORT INFORMATION
  Report Type: 
  Country: None (occurrence: None)
  Receive Date: 20110119
  Receipt Date: 20110119
  Transmission Date: 20110831
  Serious: Yes (Life-Threatening, Hospitalization)
  Sender: FDA-Public Use
  Company Number: None

PATIENT
  Sex: Female
  Weight: 66.6788 kg

DRUGS (9)
  1. PEGAPTANIB SODIUM INJECTION [Suspect]
     Indication: DIABETIC RETINAL OEDEMA
     Dosage: Q 4 WKS INTRAVITREAL INJ
     Dates: start: 20100928, end: 20101025
  2. SIMILASAN [Concomitant]
  3. ACIDOPHILUS [Concomitant]
  4. SIMVASTATIN [Concomitant]
  5. ALOE VERA [Concomitant]
  6. ACTOS [Concomitant]
  7. AMARYL [Concomitant]
  8. GLUCOSAMIN/CHONDROITIN [Concomitant]
  9. CENTRUM SILVER [Concomitant]

REACTIONS (5)
  - NEPHROLITHIASIS [None]
  - HIP FRACTURE [None]
  - AORTIC ARTERIOSCLEROSIS [None]
  - FALL [None]
  - LUMBAR SPINAL STENOSIS [None]
